FAERS Safety Report 21447177 (Version 1)
Quarter: 2022Q4

REPORT INFORMATION
  Report Type: Spontaneous
  Country: DE (occurrence: DE)
  Receive Date: 20221012
  Receipt Date: 20221012
  Transmission Date: 20230112
  Serious: Yes (Hospitalization)
  Sender: FDA-Public Use
  Company Number: DE-ADRED-07736-01

PATIENT
  Age: 49 Year
  Sex: Female
  Weight: 132 kg

DRUGS (11)
  1. PREDNISOLONE [Suspect]
     Active Substance: PREDNISOLONE
     Indication: Product used for unknown indication
     Dosage: 40 MILLIGRAM DAILY; 1-0-0-0
  2. LIRAGLUTIDE [Concomitant]
     Active Substance: LIRAGLUTIDE
     Indication: Product used for unknown indication
     Dosage: 18 IU (INTERNATIONAL UNIT) DAILY; 1-0-0-0
  3. METAMIZOL [Concomitant]
     Active Substance: METAMIZOLE SODIUM
     Indication: Product used for unknown indication
     Dosage: 500 MG, IF NEEDED
  4. CLINDAMYCIN [Concomitant]
     Active Substance: CLINDAMYCIN
     Indication: Product used for unknown indication
     Dosage: 3 DOSAGE FORMS DAILY; 450 MG, 1-1-1-0
  5. FOSTER [Concomitant]
     Active Substance: BECLOMETHASONE\FORMOTEROL
     Indication: Product used for unknown indication
     Dosage: 1 DOSAGE FORMS DAILY; 200|6 UG, 0-0-0-1 , STRENGTH : 200 MICROGRAMS/6 MICROGRAMS
  6. MAGNESIUM [Concomitant]
     Active Substance: MAGNESIUM
     Indication: Product used for unknown indication
     Dosage: IF NECESSARY
  7. TRAMADOL [Concomitant]
     Active Substance: TRAMADOL
     Indication: Product used for unknown indication
     Dosage: 50 MG, IF NECESSARY
  8. Pankreozymin (Cholecystokinin) [Concomitant]
     Indication: Product used for unknown indication
     Dosage: 1000 IU (INTERNATIONAL UNIT) DAILY;  1-0-0-0
  9. CANDESARTAN [Concomitant]
     Active Substance: CANDESARTAN
     Indication: Product used for unknown indication
     Dosage: 8 MILLIGRAM DAILY;  1-0-0-0
  10. NEOMYCIN [Concomitant]
     Active Substance: NEOMYCIN
     Indication: Product used for unknown indication
     Dosage: ACCORDING TO SCHEME
  11. INSULIN DEGLUDEC [Concomitant]
     Active Substance: INSULIN DEGLUDEC
     Indication: Product used for unknown indication
     Dosage: 22 IU (INTERNATIONAL UNIT) DAILY;  0-0-1-0

REACTIONS (1)
  - Swelling [Unknown]

NARRATIVE: CASE EVENT DATE: 20210914
